FAERS Safety Report 5820079-X (Version None)
Quarter: 2008Q3

REPORT INFORMATION
  Report Type: 
  Country: None (occurrence: None)
  Receive Date: 20080724
  Receipt Date: 20080715
  Transmission Date: 20090109
  Serious: Yes (Other)
  Sender: FDA-Public Use
  Company Number: GB-JNJFOC-20080704924

PATIENT
  Age: 20 Year
  Sex: Female

DRUGS (1)
  1. ARESTIN [Suspect]
     Indication: ACNE

REACTIONS (1)
  - HEPATITIS [None]
